FAERS Safety Report 15350333 (Version 2)
Quarter: 2019Q4

REPORT INFORMATION
  Report Type: Report from Study
  Country: US (occurrence: US)
  Receive Date: 20180905
  Receipt Date: 20191227
  Transmission Date: 20200122
  Serious: No
  Sender: FDA-Public Use
  Company Number: PHHY2018US090152

PATIENT
  Age: 38 Year
  Sex: Female
  Weight: 104.33 kg

DRUGS (2)
  1. GILENYA [Suspect]
     Active Substance: FINGOLIMOD HYDROCHLORIDE
     Dosage: UNK
     Route: 065
  2. GILENYA [Suspect]
     Active Substance: FINGOLIMOD HYDROCHLORIDE
     Indication: MULTIPLE SCLEROSIS
     Dosage: 0.5 MG, QD
     Route: 048
     Dates: start: 20180315

REACTIONS (4)
  - Abnormal sensation in eye [Unknown]
  - Photophobia [Unknown]
  - Lacrimation increased [Unknown]
  - Cough [Unknown]

NARRATIVE: CASE EVENT DATE: 20180515
